FAERS Safety Report 18829640 (Version 1)
Quarter: 2021Q1

REPORT INFORMATION
  Report Type: Spontaneous
  Country: US (occurrence: US)
  Receive Date: 20210201
  Receipt Date: 20210201
  Transmission Date: 20210419
  Serious: Yes (Other)
  Sender: FDA-Public Use
  Company Number: US-JACOBUS PHARMACEUTICAL COMPANY, INC.-2106143

PATIENT
  Age: 59 Year
  Sex: Female

DRUGS (12)
  1. OMEGA 3 [Concomitant]
     Active Substance: OMEGA-3 FATTY ACIDS
  2. RUZURGI [Suspect]
     Active Substance: AMIFAMPRIDINE
     Indication: MYASTHENIC SYNDROME
     Route: 048
     Dates: start: 20200326
  3. FOLIC ACID. [Concomitant]
     Active Substance: FOLIC ACID
  4. SYNTHROID [Concomitant]
     Active Substance: LEVOTHYROXINE SODIUM
  5. IRON [Concomitant]
     Active Substance: IRON
  6. MAGNESIUM GLUCONATE [Concomitant]
     Active Substance: MAGNESIUM GLUCONATE
  7. METHOTREXATE. [Concomitant]
     Active Substance: METHOTREXATE
  8. XELJANZ [Concomitant]
     Active Substance: TOFACITINIB CITRATE
  9. ATORVASTATIN CALCIUM. [Concomitant]
     Active Substance: ATORVASTATIN CALCIUM
  10. PREDNISONE. [Concomitant]
     Active Substance: PREDNISONE
  11. ASPIRIN. [Concomitant]
     Active Substance: ASPIRIN
  12. TURMERIC [Concomitant]
     Active Substance: HERBALS\TURMERIC

REACTIONS (1)
  - Hip fracture [Unknown]
